FAERS Safety Report 4985980-8 (Version None)
Quarter: 2006Q2

REPORT INFORMATION
  Report Type: 
  Country: None (occurrence: None)
  Receive Date: 20060419
  Receipt Date: 20060412
  Transmission Date: 20061013
  Serious: Yes (Hospitalization, Other)
  Sender: FDA-Public Use
  Company Number: HQWYE797512APR06

PATIENT
  Age: 3 Year
  Sex: Female

DRUGS (2)
  1. ADVIL [Suspect]
     Indication: HYPERTHERMIA
     Dosage: ORAL
     Route: 048
     Dates: start: 20060128
  2. ACETAMINOPHEN [Concomitant]

REACTIONS (8)
  - ABDOMINAL PAIN [None]
  - ACTIVATED PARTIAL THROMBOPLASTIN TIME PROLONGED [None]
  - ECCHYMOSIS [None]
  - HAEMATOCRIT DECREASED [None]
  - MALLORY-WEISS SYNDROME [None]
  - PETECHIAE [None]
  - PROTHROMBIN TIME PROLONGED [None]
  - RHINITIS [None]
